FAERS Safety Report 15180057 (Version 1)
Quarter: 2018Q3

REPORT INFORMATION
  Report Type: Spontaneous
  Country: US (occurrence: US)
  Receive Date: 20180622
  Receipt Date: 20180622
  Transmission Date: 20181010
  Serious: Yes (Hospitalization)
  Sender: FDA-Public Use
  Company Number: None

PATIENT
  Age: 37 Year
  Sex: Male
  Weight: 135.9 kg

DRUGS (1)
  1. INTRON A [Suspect]
     Active Substance: INTERFERON ALFA-2B
     Dates: end: 20120210

REACTIONS (5)
  - Aggression [None]
  - Malignant melanoma [None]
  - Sexually active [None]
  - Mental status changes [None]
  - Agitation [None]

NARRATIVE: CASE EVENT DATE: 20120211
